FAERS Safety Report 16497517 (Version 2)
Quarter: 2020Q2

REPORT INFORMATION
  Report Type: Spontaneous
  Country: US (occurrence: US)
  Receive Date: 20190628
  Receipt Date: 20200511
  Transmission Date: 20200713
  Serious: No
  Sender: FDA-Public Use
  Company Number: US-TRIS PHARMA, INC.-19US000007

PATIENT

DRUGS (3)
  1. OTHER THERAPEUTIC PRODUCTS [Concomitant]
     Active Substance: UNSPECIFIED INGREDIENT
     Indication: MACULAR DEGENERATION
     Dosage: UNK
  2. OTHER THERAPEUTIC PRODUCTS [Concomitant]
     Active Substance: UNSPECIFIED INGREDIENT
     Indication: HYPERTENSION
     Dosage: UNK
  3. DEXTROMETHORPHAN POLISTIREX [Suspect]
     Active Substance: DEXTROMETHORPHAN HYDROBROMIDE
     Indication: COUGH
     Dosage: 1 CAPFUL
     Route: 048
     Dates: start: 20190603, end: 20190603

REACTIONS (2)
  - Diarrhoea [Recovered/Resolved]
  - Product packaging difficult to open [Unknown]

NARRATIVE: CASE EVENT DATE: 20190603
